FAERS Safety Report 17983455 (Version 2)
Quarter: 2020Q3

REPORT INFORMATION
  Report Type: Spontaneous
  Country: GB (occurrence: GB)
  Receive Date: 20200706
  Receipt Date: 20200723
  Transmission Date: 20201103
  Serious: Yes (Hospitalization, Other)
  Sender: FDA-Public Use
  Company Number: GB-VELOXIS PHARMACEUTICALS-2020VELGB-000602

PATIENT
  Age: 32 Year
  Sex: Female

DRUGS (3)
  1. POSACONAZOLE [Suspect]
     Active Substance: POSACONAZOLE
     Indication: ANTIFUNGAL PROPHYLAXIS
     Dosage: GASTRO?RESISTANT TABLETS
     Route: 048
  2. ENVARSUS XR [Suspect]
     Active Substance: TACROLIMUS
     Indication: IMMUNOSUPPRESSANT DRUG THERAPY
     Dosage: 1 DAY
     Route: 065
  3. ISAVUCONAZOLE [Suspect]
     Active Substance: ISAVUCONAZOLE
     Indication: ANTIFUNGAL PROPHYLAXIS
     Dosage: HARD CAPSULES
     Route: 065

REACTIONS (6)
  - Respiratory disorder [Recovering/Resolving]
  - Acute kidney injury [Recovered/Resolved]
  - Flavobacterium infection [Recovered/Resolved]
  - Off label use [Unknown]
  - Fusarium infection [Recovered/Resolved]
  - Respiratory syncytial virus infection [Recovering/Resolving]
